FAERS Safety Report 8365014-8 (Version None)
Quarter: 2012Q2

REPORT INFORMATION
  Report Type: 
  Country: None (occurrence: None)
  Receive Date: 20120516
  Receipt Date: 20120510
  Transmission Date: 20120825
  Serious: Yes (Death)
  Sender: FDA-Public Use
  Company Number: US-GLAXOSMITHKLINE-A0977747A

PATIENT
  Age: 51 Year
  Sex: Male

DRUGS (4)
  1. MORPHINE SULFATE [Concomitant]
  2. HYCAMTIN [Suspect]
     Indication: PRODUCT USED FOR UNKNOWN INDICATION
     Dosage: 3MG SEE DOSAGE TEXT
     Route: 048
     Dates: start: 20120420, end: 20120420
  3. MEGESTROL ACETATE [Concomitant]
  4. OXYCODONE HCL [Concomitant]

REACTIONS (1)
  - DEATH [None]
